FAERS Safety Report 25954447 (Version 1)
Quarter: 2025Q4

REPORT INFORMATION
  Report Type: Spontaneous
  Country: EU (occurrence: EU)
  Receive Date: 20251024
  Receipt Date: 20251024
  Transmission Date: 20260118
  Serious: Yes (Hospitalization, Other)
  Sender: ASCEND THERAPEUTICS US, LLC
  Company Number: EU-Ascend Therapeutics US, LLC-2187193

PATIENT
  Age: 48 Year
  Sex: Female

DRUGS (10)
  1. ESTROGEL [Suspect]
     Active Substance: ESTRADIOL
     Indication: Hormone replacement therapy
     Dates: start: 2023
  2. ESTRADIOL [Suspect]
     Active Substance: ESTRADIOL
     Dates: start: 2023
  3. METHYLPHENIDATE [Concomitant]
     Active Substance: METHYLPHENIDATE
  4. TRIMIPRAMINE [Concomitant]
     Active Substance: TRIMIPRAMINE
  5. ESTRADIOL [Suspect]
     Active Substance: ESTRADIOL
     Dates: start: 2024, end: 20250629
  6. PROGESTERONE [Suspect]
     Active Substance: PROGESTERONE
     Dates: start: 202409
  7. PROGESTERONE [Suspect]
     Active Substance: PROGESTERONE
     Dates: start: 2024, end: 2024
  8. PROGESTERONE [Suspect]
     Active Substance: PROGESTERONE
     Dates: start: 202409
  9. PROGESTERONE [Suspect]
     Active Substance: PROGESTERONE
     Dates: start: 2024, end: 2024
  10. PROGESTERONE [Suspect]
     Active Substance: PROGESTERONE
     Dates: start: 2023

REACTIONS (6)
  - Suicidal ideation [Recovering/Resolving]
  - Product use issue [Unknown]
  - Menstrual disorder [Recovered/Resolved]
  - Vaginal haemorrhage [Recovering/Resolving]
  - Intermenstrual bleeding [Recovered/Resolved]
  - Mucosal irritation [Unknown]

NARRATIVE: CASE EVENT DATE: 20240101
